FAERS Safety Report 15375214 (Version 3)
Quarter: 2018Q4

REPORT INFORMATION
  Report Type: Report from Study
  Country: CA (occurrence: CA)
  Receive Date: 20180912
  Receipt Date: 20181009
  Transmission Date: 20190204
  Serious: Yes (Other)
  Sender: FDA-Public Use
  Company Number: CA-GLAXOSMITHKLINE-CA2018GSK163295

PATIENT
  Sex: Female

DRUGS (4)
  1. CORTISONE ACETATE. [Suspect]
     Active Substance: CORTISONE ACETATE
     Indication: PRODUCT USED FOR UNKNOWN INDICATION
     Dosage: UNK
     Route: 048
  2. FLUTICASONE PROPIONATE+SALMETEROL XINAFOATE [Suspect]
     Active Substance: FLUTICASONE PROPIONATE\SALMETEROL XINAFOATE
     Indication: PRODUCT USED FOR UNKNOWN INDICATION
     Dosage: UNK
  3. VENTOLIN [Suspect]
     Active Substance: ALBUTEROL SULFATE
     Indication: PRODUCT USED FOR UNKNOWN INDICATION
     Dosage: UNK
  4. NUCALA [Suspect]
     Active Substance: MEPOLIZUMAB
     Indication: ASTHMA
     Dosage: 100 MG, Z
     Route: 042

REACTIONS (16)
  - Blood pressure increased [Not Recovered/Not Resolved]
  - Rales [Unknown]
  - Diabetes mellitus [Unknown]
  - Hypertension [Unknown]
  - Respiratory tract congestion [Unknown]
  - Productive cough [Unknown]
  - Lung infection [Unknown]
  - Chest discomfort [Unknown]
  - Hyperglycaemia [Unknown]
  - Heart rate increased [Unknown]
  - Bacterial infection [Unknown]
  - Tachycardia [Unknown]
  - Pain [Unknown]
  - Palpitations [Unknown]
  - Hypersensitivity [Unknown]
  - Drug ineffective [Unknown]
